FAERS Safety Report 17582615 (Version 1)
Quarter: 2020Q1

REPORT INFORMATION
  Report Type: Spontaneous
  Country: US (occurrence: US)
  Receive Date: 20200325
  Receipt Date: 20200325
  Transmission Date: 20200409
  Serious: No
  Sender: FDA-Public Use
  Company Number: US-ELI_LILLY_AND_COMPANY-US202003009086

PATIENT
  Age: 37 Year
  Sex: Female

DRUGS (1)
  1. EMGALITY [Suspect]
     Active Substance: GALCANEZUMAB-GNLM
     Indication: MIGRAINE
     Dosage: 240 MG, SINGLE
     Dates: start: 20200317

REACTIONS (6)
  - Asthenia [Unknown]
  - Heart rate increased [Unknown]
  - Feeling abnormal [Unknown]
  - Autoscopy [Unknown]
  - Dissociation [Unknown]
  - Tremor [Unknown]

NARRATIVE: CASE EVENT DATE: 20200318
